FAERS Safety Report 6712665-X (Version None)
Quarter: 2010Q2

REPORT INFORMATION
  Report Type: 
  Country: None (occurrence: None)
  Receive Date: 20100505
  Receipt Date: 20100505
  Transmission Date: 20101027
  Serious: Yes (Hospitalization)
  Sender: FDA-Public Use
  Company Number: None

PATIENT
  Sex: Female
  Weight: 70.3075 kg

DRUGS (5)
  1. FOSAMAX [Suspect]
     Indication: OSTEOPOROSIS
     Dosage: 70 MG /PO Q WK. PO
     Route: 048
  2. D3 [Concomitant]
  3. CALCIUM [Concomitant]
  4. LEVOXYL [Concomitant]
  5. OMEPRAZOLE [Suspect]

REACTIONS (1)
  - FEMUR FRACTURE [None]
